FAERS Safety Report 24704755 (Version 1)
Quarter: 2024Q4

REPORT INFORMATION
  Report Type: Spontaneous
  Country: US (occurrence: US)
  Receive Date: 20241206
  Receipt Date: 20241206
  Transmission Date: 20250115
  Serious: No
  Sender: PADAGIS
  Company Number: US-PADAGIS-2024PAD01887

PATIENT

DRUGS (4)
  1. IBUPROFEN [Suspect]
     Active Substance: IBUPROFEN
     Indication: Toothache
     Dosage: UNK
     Route: 065
  2. MUPIROCIN [Suspect]
     Active Substance: MUPIROCIN
     Indication: Blister
     Dosage: UNK, TID
     Route: 061
  3. MUPIROCIN [Suspect]
     Active Substance: MUPIROCIN
     Indication: Epidermal necrosis
  4. MUPIROCIN [Suspect]
     Active Substance: MUPIROCIN
     Indication: Lymphocytic infiltration

REACTIONS (2)
  - Fixed eruption [Recovered/Resolved]
  - Product use in unapproved indication [Unknown]
